FAERS Safety Report 20045608 (Version 1)
Quarter: 2021Q4

REPORT INFORMATION
  Report Type: Spontaneous
  Country: TH (occurrence: TH)
  Receive Date: 20211108
  Receipt Date: 20211108
  Transmission Date: 20220303
  Serious: Yes (Other)
  Sender: FDA-Public Use
  Company Number: TH-JUBILANT PHARMA LTD-2021TH000788

PATIENT
  Age: 35 Year
  Sex: Female

DRUGS (6)
  1. SODIUM IODIDE I-131 [Suspect]
     Active Substance: SODIUM IODIDE I-131
     Indication: Basedow^s disease
     Dosage: DOSE UNK, DIAGNOSTIC RAI
  2. SODIUM IODIDE I-131 [Suspect]
     Active Substance: SODIUM IODIDE I-131
     Dosage: DOSE UNK, THERAPEUTIC RAI
  3. SODIUM IODIDE I-131 [Suspect]
     Active Substance: SODIUM IODIDE I-131
     Dosage: DOSE UNK, THERAPEUTIC RAI
  4. SODIUM IODIDE I-131 [Suspect]
     Active Substance: SODIUM IODIDE I-131
     Dosage: DOSE UNK, THERAPEUTIC RAI
  5. SODIUM IODIDE I-131 [Suspect]
     Active Substance: SODIUM IODIDE I-131
     Dosage: 0.03MCI, VERY LOW UPTAKE AT 4H, DIAGNOSTIC RAI
  6. SODIUM IODIDE I-131 [Suspect]
     Active Substance: SODIUM IODIDE I-131
     Dosage: 0.03MCI, VERY LOW UPTAKE, AFTER 1 YEAR, DIAGNOSTIC RAI

REACTIONS (3)
  - Endocrine ophthalmopathy [Recovered/Resolved with Sequelae]
  - Hypothyroidism [Unknown]
  - Hyperthyroidism [Recovering/Resolving]
